FAERS Safety Report 4805439-8 (Version None)
Quarter: 2005Q4

REPORT INFORMATION
  Report Type: 
  Country: None (occurrence: None)
  Receive Date: 20051018
  Receipt Date: 20051005
  Transmission Date: 20060501
  Serious: Yes (Hospitalization)
  Sender: FDA-Public Use
  Company Number: 2005019631

PATIENT
  Age: 36 Year
  Sex: Female
  Weight: 57 kg

DRUGS (2)
  1. DOSTINEX [Suspect]
     Indication: PROLACTINOMA
     Dosage: THREE TABLETS (DAILY)
     Dates: start: 20040901, end: 20050101
  2. FERROUS SULFATE TAB [Concomitant]

REACTIONS (8)
  - ABDOMINAL PAIN UPPER [None]
  - ABORTION THREATENED [None]
  - CAESAREAN SECTION [None]
  - DRUG EXPOSURE DURING PREGNANCY [None]
  - METRORRHAGIA [None]
  - PREGNANCY [None]
  - UTERINE LEIOMYOMA [None]
  - VOMITING [None]
